FAERS Safety Report 6102732-6 (Version None)
Quarter: 2009Q1

REPORT INFORMATION
  Report Type: 
  Country: None (occurrence: None)
  Receive Date: 20090227
  Receipt Date: 20090212
  Transmission Date: 20090719
  Serious: Yes (Death, Life-Threatening, Other)
  Sender: FDA-Public Use
  Company Number: BAYER CASE ID: 200824191GPV

PATIENT
  Age: 59 Year
  Sex: 0

DRUGS (4)
  1. FLUDARABINE PHOSPHATE [Suspect]
     Indication: CHRONIC LYMPHOCYTIC LEUKAEMIA
     Dosage: 40 MG/M2 ORAL
     Route: 048
  2. CAMPATH [Suspect]
     Indication: CHRONIC LYMPHOCYTIC LEUKAEMIA
  3. CAMPATH [Suspect]
     Indication: MALIGNANT NEOPLASM PROGRESSION
  4. CYCLOPHOSPHAMIDE [Suspect]
     Indication: CHRONIC LYMPHOCYTIC LEUKAEMIA
     Dosage: 250 MG/M2 ORAL
     Route: 048

REACTIONS (5)
  - CHRONIC LYMPHOCYTIC LEUKAEMIA [None]
  - LUNG INFECTION PSEUDOMONAL [None]
  - MALIGNANT NEOPLASM PROGRESSION [None]
  - PSEUDOMONAL SEPSIS [None]
  - SEPTIC SHOCK [None]
